FAERS Safety Report 25338940 (Version 1)
Quarter: 2025Q2

REPORT INFORMATION
  Report Type: Spontaneous
  Country: US (occurrence: US)
  Receive Date: 20250520
  Receipt Date: 20250520
  Transmission Date: 20250716
  Serious: Yes (Hospitalization, Other)
  Sender: BRISTOL-MYERS SQUIBB COMPANY
  Company Number: US-BRISTOL-MYERS SQUIBB COMPANY-2025-070471

PATIENT
  Age: 61 Year
  Sex: Male

DRUGS (16)
  1. ELIQUIS [Suspect]
     Active Substance: APIXABAN
     Indication: Cardiac operation
     Route: 048
     Dates: start: 2021
  2. ELIQUIS [Suspect]
     Active Substance: APIXABAN
     Route: 048
  3. TRICOR [Concomitant]
     Active Substance: FENOFIBRATE
     Indication: Product used for unknown indication
  4. ATORVASTATIN [Concomitant]
     Active Substance: ATORVASTATIN
  5. METOPROLOL [Concomitant]
     Active Substance: METOPROLOL
  6. FOLIC ACID [Concomitant]
     Active Substance: FOLIC ACID
  7. TRAMADOL [Concomitant]
     Active Substance: TRAMADOL
  8. PALEXIA [Concomitant]
     Active Substance: TAPENTADOL HYDROCHLORIDE
  9. TYLENOL [Concomitant]
     Active Substance: ACETAMINOPHEN
  10. CYANOCOBALAMIN [Concomitant]
     Active Substance: CYANOCOBALAMIN
     Indication: Product used for unknown indication
  11. ZINC [Concomitant]
     Active Substance: ZINC
  12. COENZYME Q10 [Concomitant]
     Active Substance: DIETARY SUPPLEMENT\UBIDECARENONE
     Dosage: TWO GUMMIES A DAY
  13. GINKGO [Concomitant]
     Active Substance: GINKGO
  14. VITAMIN C [Concomitant]
     Active Substance: ASCORBIC ACID
     Indication: Product used for unknown indication
  15. VITAMIN D3 [Concomitant]
     Active Substance: CHOLECALCIFEROL
  16. ECHINACEA [ECHINACEA SPP.] [Concomitant]
     Indication: Product used for unknown indication

REACTIONS (10)
  - Accident [Unknown]
  - Back injury [Unknown]
  - Limb injury [Unknown]
  - Rhinorrhoea [Unknown]
  - Pain [Unknown]
  - Memory impairment [Unknown]
  - Off label use [Unknown]
  - Spinal cord injury [Unknown]
  - Sleep disorder [Unknown]
  - Cardiac disorder [Unknown]
